FAERS Safety Report 13121322 (Version 1)
Quarter: 2017Q1

REPORT INFORMATION
  Report Type: Spontaneous
  Country: US (occurrence: US)
  Receive Date: 20170117
  Receipt Date: 20170117
  Transmission Date: 20170428
  Serious: Yes (Other)
  Sender: FDA-Public Use
  Company Number: US-JNJFOC-20170110349

PATIENT

DRUGS (1)
  1. DOXORUBICIN HYDROCHLORIDE. [Suspect]
     Active Substance: DOXORUBICIN HYDROCHLORIDE
     Indication: HEPATOCELLULAR CARCINOMA
     Dosage: MEDIAN (IQR) DOXORUBICIN DOSE WAS 50 (30-75) MG
     Route: 013

REACTIONS (6)
  - Off label use [Unknown]
  - Ascites [Unknown]
  - Incorrect route of drug administration [Unknown]
  - Fatigue [Unknown]
  - Product use issue [Unknown]
  - Nausea [Unknown]
